FAERS Safety Report 25739012 (Version 1)
Quarter: 2025Q3

REPORT INFORMATION
  Report Type: Spontaneous
  Country: US (occurrence: US)
  Receive Date: 20250829
  Receipt Date: 20250829
  Transmission Date: 20251020
  Serious: No
  Sender: AMGEN
  Company Number: US-AMGEN-USASP2025171671

PATIENT
  Age: 40 Year
  Sex: Female

DRUGS (3)
  1. OTEZLA [Suspect]
     Active Substance: APREMILAST
     Indication: Seborrhoeic dermatitis
     Dosage: 30 MILLIGRAM, BID
     Route: 048
     Dates: start: 20250729
  2. OTEZLA [Suspect]
     Active Substance: APREMILAST
     Indication: Off label use
  3. OLUMIANT [Concomitant]
     Active Substance: BARICITINIB

REACTIONS (4)
  - Therapy non-responder [Unknown]
  - Rash [Unknown]
  - Pain [Unknown]
  - Off label use [Unknown]

NARRATIVE: CASE EVENT DATE: 20250101
